FAERS Safety Report 16064308 (Version 6)
Quarter: 2020Q2

REPORT INFORMATION
  Report Type: Spontaneous
  Country: US (occurrence: US)
  Receive Date: 20190312
  Receipt Date: 20200605
  Transmission Date: 20200713
  Serious: No
  Sender: FDA-Public Use
  Company Number: US-ACTELION-A-NJ2019-186719

PATIENT
  Age: 40 Year
  Sex: Female
  Weight: 94.33 kg

DRUGS (8)
  1. UPTRAVI [Suspect]
     Active Substance: SELEXIPAG
     Indication: PULMONARY ARTERIAL HYPERTENSION
     Dosage: 600 MCG, BID
     Route: 048
  2. UPTRAVI [Suspect]
     Active Substance: SELEXIPAG
     Dosage: 1000 MCG, BID
     Route: 048
     Dates: start: 20160408
  3. UPTRAVI [Suspect]
     Active Substance: SELEXIPAG
     Dosage: 1200 MCG, BID
     Route: 048
     Dates: start: 20160408
  4. UPTRAVI [Suspect]
     Active Substance: SELEXIPAG
     Dosage: 800 MCG, BID
     Route: 048
  5. LETAIRIS [Concomitant]
     Active Substance: AMBRISENTAN
  6. UPTRAVI [Suspect]
     Active Substance: SELEXIPAG
     Dosage: 400 MCG, BID
     Route: 048
  7. AMBRISENTAN [Concomitant]
     Active Substance: AMBRISENTAN
     Dosage: UNK
     Dates: start: 202003
  8. ADCIRCA [Concomitant]
     Active Substance: TADALAFIL

REACTIONS (17)
  - Nausea [Unknown]
  - Malaise [Unknown]
  - Insomnia [Unknown]
  - Bedridden [Recovering/Resolving]
  - General physical health deterioration [Recovering/Resolving]
  - Dyspnoea [Unknown]
  - Pain in extremity [Unknown]
  - Influenza [Unknown]
  - Thyroid disorder [Unknown]
  - Swelling face [Unknown]
  - Stress [Unknown]
  - Myalgia [Not Recovered/Not Resolved]
  - Headache [Not Recovered/Not Resolved]
  - Feeling abnormal [Unknown]
  - Fatigue [Unknown]
  - Fibromyalgia [Unknown]
  - Anxiety [Unknown]

NARRATIVE: CASE EVENT DATE: 202004
